APPROVED DRUG PRODUCT: BISOPROLOL FUMARATE AND HYDROCHLOROTHIAZIDE
Active Ingredient: BISOPROLOL FUMARATE; HYDROCHLOROTHIAZIDE
Strength: 10MG;6.25MG
Dosage Form/Route: TABLET;ORAL
Application: A075768 | Product #003 | TE Code: AB
Applicant: MYLAN PHARMACEUTICALS INC
Approved: Sep 25, 2000 | RLD: No | RS: No | Type: RX